FAERS Safety Report 5207257-8 (Version None)
Quarter: 2007Q1

REPORT INFORMATION
  Report Type: 
  Country: None (occurrence: None)
  Receive Date: 20070112
  Receipt Date: 20070105
  Transmission Date: 20070707
  Serious: Yes (Hospitalization)
  Sender: FDA-Public Use
  Company Number: US-ABBOTT-06P-163-0338362-00

PATIENT
  Sex: Male

DRUGS (2)
  1. BIAXIN XL [Suspect]
     Indication: NASOPHARYNGITIS
     Dates: start: 20060306
  2. BIAXIN XL [Suspect]
     Indication: PYREXIA

REACTIONS (2)
  - DIARRHOEA [None]
  - GASTRIC ULCER [None]
